FAERS Safety Report 10262982 (Version 2)
Quarter: 2014Q2

REPORT INFORMATION
  Report Type: Report from Study
  Country: US (occurrence: US)
  Receive Date: 20140626
  Receipt Date: 20140626
  Transmission Date: 20141212
  Serious: Yes (Death)
  Sender: FDA-Public Use
  Company Number: US-MYLANLABS-2013S1024861

PATIENT
  Sex: Male

DRUGS (2)
  1. CLOZAPINE TABLETS [Suspect]
     Dosage: 1 TAB QAM AND 5 TAB QHS
     Route: 048
     Dates: start: 201208
  2. CLOZAPINE TABLETS [Suspect]
     Dosage: 1 TAB QAM AND 5 TAB QHS
     Route: 048
     Dates: start: 201208

REACTIONS (1)
  - Neoplasm malignant [Fatal]
